FAERS Safety Report 16551914 (Version 1)
Quarter: 2019Q3

REPORT INFORMATION
  Report Type: Spontaneous
  Country: TR (occurrence: TR)
  Receive Date: 20190710
  Receipt Date: 20190710
  Transmission Date: 20191004
  Serious: Yes (Death, Hospitalization)
  Sender: FDA-Public Use
  Company Number: TR-PFIZER INC-2019290616

PATIENT
  Age: 64 Year
  Sex: Female
  Weight: 101 kg

DRUGS (5)
  1. LEVOTIRON [Concomitant]
     Active Substance: LEVOTHYROXINE SODIUM
     Dosage: UNK
  2. AXITINIB [Suspect]
     Active Substance: AXITINIB
     Dosage: 10 MG, 2X/DAY
  3. AMLODIPINE [Concomitant]
     Active Substance: AMLODIPINE BESYLATE
     Indication: HYPERTENSION
     Dosage: UNK
  4. MEGESTROL [Concomitant]
     Active Substance: MEGESTROL
     Dosage: UNK
  5. AXITINIB [Suspect]
     Active Substance: AXITINIB
     Indication: METASTATIC RENAL CELL CARCINOMA
     Dosage: 5 MG, 2X/DAY
     Dates: start: 201612

REACTIONS (4)
  - Fatigue [Unknown]
  - Acute coronary syndrome [Fatal]
  - Decreased appetite [Unknown]
  - Nausea [Unknown]

NARRATIVE: CASE EVENT DATE: 201707
